FAERS Safety Report 7409043-7 (Version None)
Quarter: 2011Q2

REPORT INFORMATION
  Report Type: 
  Country: None (occurrence: None)
  Receive Date: 20110407
  Receipt Date: 20110407
  Transmission Date: 20111010
  Serious: Yes (Other)
  Sender: FDA-Public Use
  Company Number: None

PATIENT
  Age: 56 Year
  Sex: Female
  Weight: 69.8539 kg

DRUGS (1)
  1. CLOTRIMAZOLE [Suspect]
     Indication: FUNGAL INFECTION
     Dates: start: 20110401, end: 20110405

REACTIONS (3)
  - PRURITUS [None]
  - FALL [None]
  - RASH [None]
